FAERS Safety Report 9657310 (Version 2)
Quarter: 2013Q4

REPORT INFORMATION
  Report Type: Report from Study
  Country: US (occurrence: US)
  Receive Date: 20131030
  Receipt Date: 20131216
  Transmission Date: 20140711
  Serious: Yes (Hospitalization, Other)
  Sender: FDA-Public Use
  Company Number: US-JNJFOC-20131015439

PATIENT
  Sex: Male
  Weight: 96.16 kg

DRUGS (7)
  1. REMICADE [Suspect]
     Indication: PSORIATIC ARTHROPATHY
     Route: 042
     Dates: start: 2012, end: 201208
  2. IBUPROFEN [Suspect]
     Indication: PRODUCT USED FOR UNKNOWN INDICATION
     Route: 065
     Dates: start: 201208
  3. PANTOPRAZOLE [Concomitant]
     Indication: GASTROOESOPHAGEAL REFLUX DISEASE
     Route: 048
     Dates: start: 2013
  4. BUPROPION [Concomitant]
     Indication: ANXIETY
     Route: 065
     Dates: start: 2013
  5. BUPROPION [Concomitant]
     Indication: DEPRESSION
     Route: 065
     Dates: start: 2013
  6. TRAMADOL [Concomitant]
     Indication: PAIN
     Route: 048
     Dates: start: 2011
  7. TURMERIC [Concomitant]
     Indication: ARTHRITIS
     Route: 065

REACTIONS (12)
  - Meningitis [Recovered/Resolved]
  - Diverticulitis [Recovered/Resolved]
  - Cellulitis [Recovered/Resolved]
  - Cellulitis [Recovered/Resolved]
  - Immune system disorder [Unknown]
  - Tinnitus [Not Recovered/Not Resolved]
  - Dysphonia [Not Recovered/Not Resolved]
  - Abnormal loss of weight [Not Recovered/Not Resolved]
  - Medication overuse headache [Recovered/Resolved]
  - Muscle spasms [Not Recovered/Not Resolved]
  - Drug ineffective [Unknown]
  - Pain in extremity [Not Recovered/Not Resolved]
